FAERS Safety Report 7876969-X (Version None)
Quarter: 2011Q4

REPORT INFORMATION
  Report Type: 
  Country: None (occurrence: None)
  Receive Date: 20111031
  Receipt Date: 20111020
  Transmission Date: 20120403
  Serious: Yes (Life-Threatening, Hospitalization, Other)
  Sender: FDA-Public Use
  Company Number: PHHY2011GB87150

PATIENT
  Age: 31 Year
  Sex: Female
  Weight: 63.5 kg

DRUGS (6)
  1. PAROXETINE HCL [Interacting]
     Dosage: 20 MG, TID
  2. DOMPERIDONE [Interacting]
  3. PAROXETINE HCL [Suspect]
     Indication: DEPRESSION
  4. TRAMADOL HCL [Interacting]
     Dosage: 15 MG, QD
     Dates: start: 20080722, end: 20101210
  5. MIRTAZAPINE [Interacting]
     Indication: DEPRESSION
     Dosage: 30 MG, UNK
     Dates: start: 20100923, end: 20101108
  6. MIRTAZAPINE [Interacting]
     Dosage: 15 MG, AT NIGHT
     Dates: start: 20100923, end: 20101108

REACTIONS (56)
  - SPEECH DISORDER [None]
  - SEROTONIN SYNDROME [None]
  - NEUROLEPTIC MALIGNANT SYNDROME [None]
  - RESTLESSNESS [None]
  - ASTHENIA [None]
  - HALLUCINATION, AUDITORY [None]
  - MUSCULAR WEAKNESS [None]
  - PRURITUS [None]
  - HYPERSOMNIA [None]
  - AGITATION [None]
  - INCOHERENT [None]
  - URINARY RETENTION [None]
  - ARTHRALGIA [None]
  - VOMITING [None]
  - EPILEPSY [None]
  - MUSCLE RIGIDITY [None]
  - MUSCULOSKELETAL STIFFNESS [None]
  - COGWHEEL RIGIDITY [None]
  - PUPILLARY DISORDER [None]
  - SWOLLEN TONGUE [None]
  - PALLOR [None]
  - SCHIZOPHRENIA [None]
  - H1N1 INFLUENZA [None]
  - TREMOR [None]
  - HYPERHIDROSIS [None]
  - CONFUSIONAL STATE [None]
  - HALLUCINATION [None]
  - FEELING ABNORMAL [None]
  - SUICIDAL IDEATION [None]
  - INCONTINENCE [None]
  - EYE PAIN [None]
  - GASTRIC PH DECREASED [None]
  - PAIN [None]
  - PARAESTHESIA [None]
  - DECREASED APPETITE [None]
  - ANXIETY [None]
  - MALAISE [None]
  - DELIRIUM [None]
  - DIZZINESS [None]
  - PAROSMIA [None]
  - VISION BLURRED [None]
  - PSYCHOTIC DISORDER [None]
  - VIITH NERVE PARALYSIS [None]
  - DEPRESSION [None]
  - PYREXIA [None]
  - MYALGIA [None]
  - DROOLING [None]
  - ABASIA [None]
  - SENSORY DISTURBANCE [None]
  - CYANOSIS [None]
  - DEPERSONALISATION [None]
  - FATIGUE [None]
  - GAIT DISTURBANCE [None]
  - DRUG INTERACTION [None]
  - SENSORY LOSS [None]
  - TINNITUS [None]
